FAERS Safety Report 18620575 (Version 2)
Quarter: 2021Q1

REPORT INFORMATION
  Report Type: Spontaneous
  Country: JP (occurrence: JP)
  Receive Date: 20201216
  Receipt Date: 20210205
  Transmission Date: 20210419
  Serious: Yes (Other)
  Sender: FDA-Public Use
  Company Number: JP-TAKEDA-2020TJP027176

PATIENT
  Age: 80 Year
  Sex: Male

DRUGS (3)
  1. ZOLPIDEM TARTRATE. [Concomitant]
     Active Substance: ZOLPIDEM TARTRATE
     Dosage: UNK
     Route: 065
  2. TRINTELLIX [Suspect]
     Active Substance: VORTIOXETINE HYDROBROMIDE
     Indication: DEPRESSION
     Dosage: 5 MILLIGRAM
     Route: 048
     Dates: start: 20201201, end: 20201209
  3. SULPIRIDE [Concomitant]
     Active Substance: SULPIRIDE
     Indication: DEPRESSION
     Dosage: UNK
     Route: 065
     Dates: start: 2019

REACTIONS (4)
  - Condition aggravated [Not Recovered/Not Resolved]
  - Arrhythmia [Not Recovered/Not Resolved]
  - Decreased appetite [Not Recovered/Not Resolved]
  - Prescribed underdose [Recovered/Resolved]

NARRATIVE: CASE EVENT DATE: 202012
